FAERS Safety Report 17666357 (Version 1)
Quarter: 2020Q2

REPORT INFORMATION
  Report Type: Spontaneous
  Country: US (occurrence: US)
  Receive Date: 20200413
  Receipt Date: 20200413
  Transmission Date: 20200713
  Serious: Yes (Hospitalization)
  Sender: FDA-Public Use
  Company Number: None

PATIENT
  Age: 64 Year
  Sex: Female

DRUGS (2)
  1. NEULASTA [Concomitant]
     Active Substance: PEGFILGRASTIM
  2. VERZENIO [Suspect]
     Active Substance: ABEMACICLIB
     Indication: BREAST CANCER
     Dosage: ?          OTHER DOSE:1 TAB;?
     Route: 048
     Dates: start: 20190716

REACTIONS (4)
  - Metastases to bone [None]
  - Cancer surgery [None]
  - Pain [None]
  - Metastases to liver [None]

NARRATIVE: CASE EVENT DATE: 20200123
